FAERS Safety Report 22098313 (Version 6)
Quarter: 2024Q4

REPORT INFORMATION
  Report Type: Report from Study
  Country: CA (occurrence: CA)
  Receive Date: 20230315
  Receipt Date: 20241002
  Transmission Date: 20250114
  Serious: Yes (Other)
  Sender: CURRAX PHARMACEUTICALS
  Company Number: CA-BAUSCH-BL-2023-003751

PATIENT
  Sex: Female

DRUGS (6)
  1. CONTRAVE [Suspect]
     Active Substance: BUPROPION HYDROCHLORIDE\NALTREXONE HYDROCHLORIDE
     Indication: Weight control
     Dosage: 90/8 MG
     Route: 048
     Dates: start: 2023, end: 2023
  2. CONTRAVE [Suspect]
     Active Substance: BUPROPION HYDROCHLORIDE\NALTREXONE HYDROCHLORIDE
     Dosage: 90/8MG, 2 TABS QAM/1 TAB QPM
     Route: 048
     Dates: start: 20230201, end: 20230204
  3. CONTRAVE [Suspect]
     Active Substance: BUPROPION HYDROCHLORIDE\NALTREXONE HYDROCHLORIDE
     Dosage: 90/8MG, 1 TABS QAM/1 TAB QPM
     Route: 048
     Dates: start: 20230205, end: 2023
  4. CONTRAVE [Suspect]
     Active Substance: BUPROPION HYDROCHLORIDE\NALTREXONE HYDROCHLORIDE
     Dosage: 90/8MG, 1 TAB/DAY
     Route: 048
     Dates: start: 202305, end: 202305
  5. CONTRAVE [Suspect]
     Active Substance: BUPROPION HYDROCHLORIDE\NALTREXONE HYDROCHLORIDE
     Dosage: 90/8MG, 1-2 TABS/DAY
     Route: 048
     Dates: start: 202305, end: 202305
  6. CONTRAVE [Suspect]
     Active Substance: BUPROPION HYDROCHLORIDE\NALTREXONE HYDROCHLORIDE
     Dosage: 90/8MG, 1 TAB DAILY
     Route: 048
     Dates: start: 202305

REACTIONS (13)
  - Panic attack [Recovered/Resolved]
  - Sensory disturbance [Recovered/Resolved]
  - Stress [Not Recovered/Not Resolved]
  - Food craving [Unknown]
  - Musculoskeletal stiffness [Recovering/Resolving]
  - Ageusia [Not Recovered/Not Resolved]
  - Limb injury [Unknown]
  - Weight increased [Not Recovered/Not Resolved]
  - Hunger [Unknown]
  - Feeling hot [Recovered/Resolved]
  - Product dose omission in error [Unknown]
  - Patient dissatisfaction with treatment [Unknown]
  - Intentional underdose [Unknown]

NARRATIVE: CASE EVENT DATE: 20230101
